FAERS Safety Report 10365001 (Version 1)
Quarter: 2014Q3

REPORT INFORMATION
  Report Type: Spontaneous
  Country: US (occurrence: None)
  Receive Date: 20140805
  Receipt Date: 20140805
  Transmission Date: 20150326
  Serious: Yes (Other)
  Sender: FDA-Public Use
  Company Number: None

PATIENT
  Age: 35 Year
  Sex: Female

DRUGS (1)
  1. MAKENA [Suspect]
     Active Substance: HYDROXYPROGESTERONE CAPROATE
     Dosage: 1 ML (250 MG) EACH WEEK INTRAMUSCULAR
     Route: 030
     Dates: start: 20140612, end: 20140710

REACTIONS (2)
  - Maternal drugs affecting foetus [None]
  - Foetal death [None]

NARRATIVE: CASE EVENT DATE: 20140711
